FAERS Safety Report 6409825-4 (Version None)
Quarter: 2009Q4

REPORT INFORMATION
  Report Type: 
  Country: None (occurrence: None)
  Receive Date: 20091022
  Receipt Date: 20091014
  Transmission Date: 20100525
  Serious: Yes (Hospitalization, Other)
  Sender: FDA-Public Use
  Company Number: US-ABBOTT-09P-163-0602972-00

PATIENT
  Sex: Female

DRUGS (5)
  1. HUMIRA [Suspect]
     Indication: RHEUMATOID ARTHRITIS
     Route: 058
     Dates: start: 20060101, end: 20070101
  2. TAXOL [Suspect]
     Indication: BREAST CANCER
     Dosage: UNKNOWN
     Dates: start: 20090401
  3. TAXOL [Suspect]
     Dosage: UNKNOWN
     Route: 065
     Dates: end: 20091001
  4. TORADOL [Suspect]
     Indication: ARTHRALGIA
     Dosage: UNKNOWN
     Dates: start: 20090901, end: 20090901
  5. PREDNISONE [Concomitant]
     Indication: RHEUMATOID ARTHRITIS

REACTIONS (19)
  - BASAL CELL CARCINOMA [None]
  - BREAST CANCER [None]
  - BREAST CANCER STAGE II [None]
  - DIARRHOEA [None]
  - DIARRHOEA HAEMORRHAGIC [None]
  - DRUG INEFFECTIVE [None]
  - DYSPNOEA [None]
  - HAEMORRHOIDS [None]
  - HYPOAESTHESIA [None]
  - MOBILITY DECREASED [None]
  - MUSCULOSKELETAL STIFFNESS [None]
  - OEDEMA PERIPHERAL [None]
  - PAIN [None]
  - PARAESTHESIA [None]
  - PRURITUS [None]
  - RASH [None]
  - SKIN DISCOLOURATION [None]
  - SQUAMOUS CELL CARCINOMA [None]
  - SWELLING [None]
